FAERS Safety Report 25269531 (Version 1)
Quarter: 2025Q2

REPORT INFORMATION
  Report Type: Spontaneous
  Country: US (occurrence: None)
  Receive Date: 20250505
  Receipt Date: 20250505
  Transmission Date: 20250716
  Serious: Yes (Other)
  Sender: FDA-CTU
  Company Number: None

PATIENT
  Age: 52 Year
  Sex: Female

DRUGS (13)
  1. DUPIXENT [Suspect]
     Active Substance: DUPILUMAB
     Indication: Dermatitis atopic
     Dosage: 300 MG  EVERY 2 WEEKS SUBCUTANEOUS?
     Route: 058
     Dates: start: 20250306, end: 20250503
  2. FOLIC ACID [Concomitant]
     Active Substance: FOLIC ACID
  3. EZETIMIBE [Concomitant]
     Active Substance: EZETIMIBE
  4. FAMOTIDINE [Concomitant]
     Active Substance: FAMOTIDINE
  5. LEFLUNOMIDE [Concomitant]
     Active Substance: LEFLUNOMIDE
  6. CLOBETASOL [Concomitant]
     Active Substance: CLOBETASOL
  7. BETAMETHASONE [Concomitant]
     Active Substance: BETAMETHASONE
  8. OPZELURA CREAM [Concomitant]
  9. SYMBICORT [Concomitant]
     Active Substance: BUDESONIDE\FORMOTEROL FUMARATE DIHYDRATE
  10. CARAFATE [Concomitant]
     Active Substance: SUCRALFATE
  11. LIPITOR [Concomitant]
     Active Substance: ATORVASTATIN CALCIUM
  12. PROTONIX [Concomitant]
     Active Substance: PANTOPRAZOLE SODIUM
  13. HUMULIN N [Concomitant]
     Active Substance: INSULIN HUMAN

REACTIONS (3)
  - Eye irritation [None]
  - Vision blurred [None]
  - Dry eye [None]

NARRATIVE: CASE EVENT DATE: 20250407
